FAERS Safety Report 17769328 (Version 1)
Quarter: 2020Q2

REPORT INFORMATION
  Report Type: Spontaneous
  Country: US (occurrence: US)
  Receive Date: 20200512
  Receipt Date: 20200512
  Transmission Date: 20200714
  Serious: Yes (Other)
  Sender: FDA-Public Use
  Company Number: US-SUN PHARMACEUTICAL INDUSTRIES LTD-2020R1-245842

PATIENT
  Sex: Female

DRUGS (2)
  1. TRAMADOL. [Suspect]
     Active Substance: TRAMADOL
     Indication: NECK PAIN
     Dosage: 1 TABLET, DAILY
     Route: 065
     Dates: start: 201911
  2. TRAMADOL. [Suspect]
     Active Substance: TRAMADOL
     Indication: MUSCLE SPASMS

REACTIONS (9)
  - Renal failure [Recovered/Resolved]
  - Blood test abnormal [Unknown]
  - Depression [Unknown]
  - Vomiting [Unknown]
  - Blood creatine increased [Unknown]
  - Nausea [Unknown]
  - Malaise [Unknown]
  - Weight decreased [Unknown]
  - Toxicity to various agents [Unknown]

NARRATIVE: CASE EVENT DATE: 2019
